FAERS Safety Report 24887339 (Version 3)
Quarter: 2025Q2

REPORT INFORMATION
  Report Type: Spontaneous
  Country: US (occurrence: US)
  Receive Date: 20250127
  Receipt Date: 20250414
  Transmission Date: 20250716
  Serious: No
  Sender: SANOFI AVENTIS
  Company Number: US-SA-2025SA023454

PATIENT
  Age: 56 Year
  Sex: Female

DRUGS (1)
  1. DUPIXENT [Suspect]
     Active Substance: DUPILUMAB
     Indication: Dermatitis atopic
     Dosage: 300 MG, QOW
     Route: 058
     Dates: start: 202411, end: 20250314

REACTIONS (11)
  - Eyelid irritation [Unknown]
  - Skin fissures [Unknown]
  - Eczema [Unknown]
  - Anal pruritus [Unknown]
  - Dry skin [Unknown]
  - Pruritus [Not Recovered/Not Resolved]
  - Product dose omission issue [Unknown]
  - Skin exfoliation [Unknown]
  - Eye pruritus [Recovering/Resolving]
  - Enterobiasis [Unknown]
  - Injection site pain [Recovered/Resolved]

NARRATIVE: CASE EVENT DATE: 20240101
